FAERS Safety Report 4646495-X (Version None)
Quarter: 2005Q2

REPORT INFORMATION
  Report Type: 
  Country: None (occurrence: None)
  Receive Date: 20050427
  Receipt Date: 20040526
  Transmission Date: 20051028
  Serious: No
  Sender: FDA-Public Use
  Company Number: US-GLAXOSMITHKLINE-A0512216A

PATIENT
  Age: 61 Year
  Sex: Female

DRUGS (6)
  1. FLOVENT [Suspect]
     Indication: ASTHMA
     Dosage: 2PUFF TWICE PER DAY
     Route: 055
     Dates: start: 20040401
  2. DIOVAN [Concomitant]
  3. TERAZOSIN HCL [Concomitant]
  4. AMBIEN [Concomitant]
  5. FLONASE [Concomitant]
  6. PROTONIX [Concomitant]

REACTIONS (3)
  - ORAL CANDIDIASIS [None]
  - PHARMACEUTICAL PRODUCT COMPLAINT [None]
  - THROAT IRRITATION [None]
